FAERS Safety Report 9257436 (Version 2)
Quarter: 2014Q1

REPORT INFORMATION
  Report Type: Spontaneous
  Country: US (occurrence: US)
  Receive Date: 20130426
  Receipt Date: 20140319
  Transmission Date: 20141002
  Serious: Yes (Other)
  Sender: FDA-Public Use
  Company Number: US-PFIZER INC-2013130015

PATIENT
  Age: 60 Year
  Sex: Female

DRUGS (21)
  1. NEURONTIN [Suspect]
     Indication: PAIN
     Dosage: 400 MG, 3X/DAY
  2. NEURONTIN [Suspect]
     Dosage: 100 MG, 3X/DAY, PRN
  3. LOPRESSOR [Concomitant]
     Dosage: 50 MG, 3X/DAY
  4. CATAPRES [Concomitant]
     Dosage: 0.1 MG, 3X/DAY
  5. DIAZEPAM [Concomitant]
     Dosage: 7.5 MG, (HS OR PRN)
  6. KLONOPIN [Concomitant]
     Dosage: 1.5 MG, DAILY (.5MG 1 TAB IN AM; 2 TABS HS)
  7. PHENOBARBITAL [Concomitant]
     Dosage: 60 MG, 1X/DAY (HS)
  8. SYNTHROID [Concomitant]
     Dosage: .05 MG, 1X/DAY
  9. POTASSIUM [Concomitant]
     Dosage: 20 MEQ, 2X/DAY
  10. MAGNESIUM [Concomitant]
     Dosage: 2 DF, 2X/DAY
  11. ASA [Concomitant]
     Dosage: TWO 325 MG, 2X/DAY
  12. TYLENOL [Concomitant]
     Indication: PAIN
     Dosage: 2 DF, UNK
  13. TYLENOL [Concomitant]
     Indication: PYREXIA
  14. PRILOSEC [Concomitant]
     Dosage: 20 MG, BID PRN
  15. COENZYME Q10 [Concomitant]
     Dosage: 120 MG, 2X/DAY
  16. CALCIUM [Concomitant]
     Dosage: 1500 MG, 1X/DAY
  17. VITAMIN D [Concomitant]
     Dosage: 50000 UNITS BIWEEKLY
  18. BENADRYL [Concomitant]
     Indication: SLEEP DISORDER
     Dosage: 75 MG, 1X/DAY (HS)
  19. HYPOTEARS [Concomitant]
     Indication: DRY EYE
     Dosage: UNK
  20. CELLUVISC [Concomitant]
     Indication: DRY EYE
     Dosage: UNK
  21. REFRESH [Concomitant]
     Indication: DRY EYE
     Dosage: UNK

REACTIONS (2)
  - Systemic lupus erythematosus [Unknown]
  - Photosensitivity reaction [Unknown]
